FAERS Safety Report 9922439 (Version 1)
Quarter: 2014Q1

REPORT INFORMATION
  Report Type: Spontaneous
  Country: US (occurrence: US)
  Receive Date: 20140225
  Receipt Date: 20140225
  Transmission Date: 20141002
  Serious: Yes (Other)
  Sender: FDA-Public Use
  Company Number: CHPA2014US003082

PATIENT
  Age: 78 Year
  Sex: Male

DRUGS (2)
  1. VOLTAREN GEL [Suspect]
     Indication: BACK PAIN
     Dosage: UNK, PRN
     Route: 061
  2. VOLTAREN GEL [Suspect]
     Indication: OFF LABEL USE

REACTIONS (3)
  - Dementia [Unknown]
  - Cerebrovascular accident [Recovered/Resolved]
  - Drug administered at inappropriate site [Unknown]
